FAERS Safety Report 16208364 (Version 1)
Quarter: 2019Q2

REPORT INFORMATION
  Report Type: Spontaneous
  Country: GR (occurrence: GR)
  Receive Date: 20190417
  Receipt Date: 20190417
  Transmission Date: 20190711
  Serious: Yes (Other)
  Sender: FDA-Public Use
  Company Number: GR-PFIZER INC-2019157547

PATIENT
  Age: 71 Year
  Sex: Female

DRUGS (4)
  1. SINEQUAN [Concomitant]
     Active Substance: DOXEPIN HYDROCHLORIDE
     Dosage: 25 UNK, UNK
  2. TOVIAZ [Suspect]
     Active Substance: FESOTERODINE FUMARATE
     Indication: POLLAKIURIA
     Dosage: 4 MG, UNK
  3. XANAX [Concomitant]
     Active Substance: ALPRAZOLAM
     Dosage: UNK
  4. TOPAMAC [Concomitant]
     Active Substance: TOPIRAMATE
     Dosage: UNK
     Dates: start: 2002

REACTIONS (2)
  - Thrombosis [Unknown]
  - Pulmonary embolism [Unknown]
